FAERS Safety Report 13921899 (Version 6)
Quarter: 2017Q4

REPORT INFORMATION
  Report Type: Spontaneous
  Country: US (occurrence: US)
  Receive Date: 20170830
  Receipt Date: 20171212
  Transmission Date: 20180320
  Serious: Yes (Other)
  Sender: FDA-Public Use
  Company Number: PHEH2017US027190

PATIENT
  Age: 66 Year
  Sex: Female

DRUGS (4)
  1. LENVATINIB [Suspect]
     Active Substance: LENVATINIB
     Indication: RENAL CANCER
     Dosage: 14 MG, QD
     Route: 048
  2. AFINITOR [Suspect]
     Active Substance: EVEROLIMUS
     Indication: RENAL CANCER
     Dosage: UNK
     Route: 048
  3. LENVATINIB [Suspect]
     Active Substance: LENVATINIB
     Dosage: 10 MG, QD
     Route: 048
  4. LENVATINIB [Suspect]
     Active Substance: LENVATINIB
     Dosage: 10 MG, QD
     Route: 048

REACTIONS (15)
  - Diarrhoea [Not Recovered/Not Resolved]
  - Neck pain [Recovering/Resolving]
  - Constipation [Not Recovered/Not Resolved]
  - Metastasis [Unknown]
  - Ear pain [Not Recovered/Not Resolved]
  - Hepatic enzyme increased [Not Recovered/Not Resolved]
  - Stomatitis [Recovering/Resolving]
  - Fatigue [Not Recovered/Not Resolved]
  - Musculoskeletal pain [Recovering/Resolving]
  - Back pain [Recovering/Resolving]
  - Pain in extremity [Not Recovered/Not Resolved]
  - Oropharyngeal pain [Not Recovered/Not Resolved]
  - Palmar-plantar erythrodysaesthesia syndrome [Not Recovered/Not Resolved]
  - Hypertension [Not Recovered/Not Resolved]
  - Heart rate increased [Not Recovered/Not Resolved]

NARRATIVE: CASE EVENT DATE: 201708
